FAERS Safety Report 8206407-9 (Version None)
Quarter: 2012Q1

REPORT INFORMATION
  Report Type: 
  Country: None (occurrence: None)
  Receive Date: 20120313
  Receipt Date: 20120308
  Transmission Date: 20120608
  Serious: Yes (Hospitalization, Other)
  Sender: FDA-Public Use
  Company Number: PHHY2012FR016877

PATIENT
  Age: 79 Year
  Sex: Male

DRUGS (6)
  1. EXFORGE [Suspect]
     Indication: HYPERTENSION
     Dosage: 5 MG AMLO, 80 MG VALS
  2. LEVOTHYROXINE SODIUM [Concomitant]
  3. PREVISCAN [Concomitant]
  4. AVODART [Concomitant]
  5. FLECAINIDE ACETATE [Concomitant]
  6. ALLOPURINOL [Concomitant]
     Dosage: 200 MG, UNK

REACTIONS (2)
  - BLOOD CREATINE PHOSPHOKINASE INCREASED [None]
  - MYOGLOBIN BLOOD INCREASED [None]
